FAERS Safety Report 17999595 (Version 3)
Quarter: 2020Q3

REPORT INFORMATION
  Report Type: Spontaneous
  Country: TR (occurrence: TR)
  Receive Date: 20200709
  Receipt Date: 20200721
  Transmission Date: 20201103
  Serious: Yes (Death, Hospitalization)
  Sender: FDA-Public Use
  Company Number: TR-ACTELION-A-US2020-206950

PATIENT
  Age: 20 Year
  Sex: Female

DRUGS (2)
  1. VENTAVIS [Suspect]
     Active Substance: ILOPROST
     Indication: PULMONARY HYPERTENSION
     Dosage: 1 DF, 9ID
     Route: 055
     Dates: end: 20200702
  2. VENTAVIS [Suspect]
     Active Substance: ILOPROST
     Dosage: 8 ID, ONCE EVERY THREE HOURS
     Route: 055
     Dates: start: 20200624

REACTIONS (3)
  - Pulmonary arterial hypertension [Fatal]
  - Malaise [Unknown]
  - Cyanosis [Unknown]

NARRATIVE: CASE EVENT DATE: 202006
